FAERS Safety Report 21871533 (Version 3)
Quarter: 2023Q1

REPORT INFORMATION
  Report Type: Spontaneous
  Country: JP (occurrence: JP)
  Receive Date: 20230117
  Receipt Date: 20230206
  Transmission Date: 20230418
  Serious: Yes (Hospitalization)
  Sender: FDA-Public Use
  Company Number: JP-GSKNCCC-Case-01647342_AE-66231

PATIENT

DRUGS (2)
  1. NUCALA [Suspect]
     Active Substance: MEPOLIZUMAB
     Indication: Eosinophilic granulomatosis with polyangiitis
     Dosage: 300 MG
     Dates: start: 20221209, end: 20221209
  2. EYLEA [Concomitant]
     Active Substance: AFLIBERCEPT
     Indication: Eye symptom

REACTIONS (1)
  - Compression fracture [Recovering/Resolving]

NARRATIVE: CASE EVENT DATE: 20221230
